FAERS Safety Report 8260479-4 (Version None)
Quarter: 2012Q2

REPORT INFORMATION
  Report Type: 
  Country: None (occurrence: None)
  Receive Date: 20120404
  Receipt Date: 20120402
  Transmission Date: 20120825
  Serious: Yes (Hospitalization, Disabling, Other)
  Sender: FDA-Public Use
  Company Number: US-MERCK-0612USA00270

PATIENT
  Age: 56 Year
  Sex: Female
  Weight: 73 kg

DRUGS (2)
  1. FOSAMAX [Suspect]
     Indication: BONE LOSS
     Route: 048
  2. ZOMETA [Suspect]
     Indication: BONE LOSS
     Route: 065
     Dates: start: 20031011

REACTIONS (18)
  - RECTAL HAEMORRHAGE [None]
  - TOOTH LOSS [None]
  - BREAST CANCER RECURRENT [None]
  - NIGHT SWEATS [None]
  - ANTIBIOTIC LEVEL BELOW THERAPEUTIC [None]
  - ANXIETY [None]
  - METASTASES TO SPINE [None]
  - PYREXIA [None]
  - OSTEONECROSIS OF JAW [None]
  - BREAST CANCER [None]
  - LYMPHOEDEMA [None]
  - METASTATIC NEOPLASM [None]
  - URINARY TRACT INFECTION [None]
  - LYMPHADENOPATHY [None]
  - BONE NEOPLASM MALIGNANT [None]
  - DYSPNOEA [None]
  - INTERVERTEBRAL DISC PROTRUSION [None]
  - DEPRESSION [None]
